FAERS Safety Report 9136288 (Version 1)
Quarter: 2013Q1

REPORT INFORMATION
  Report Type: Spontaneous
  Country: US (occurrence: US)
  Receive Date: 20130304
  Receipt Date: 20130304
  Transmission Date: 20140127
  Serious: No
  Sender: FDA-Public Use
  Company Number: US-ABBOTT-12P-163-1014267-00

PATIENT
  Sex: Male

DRUGS (2)
  1. ANDROGEL [Suspect]
     Indication: BLOOD TESTOSTERONE DECREASED
     Dosage: 4 PUMP ACTUATIONS PER DAY
     Dates: start: 2010, end: 201205
  2. ANDROGEL [Suspect]
     Indication: BLOOD TESTOSTERONE DECREASED
     Dosage: 2 PUMP ACTUATIONS DAILY
     Dates: start: 201205

REACTIONS (3)
  - Pain in extremity [Not Recovered/Not Resolved]
  - Drug administered at inappropriate site [Not Recovered/Not Resolved]
  - Hypertension [Not Recovered/Not Resolved]
